FAERS Safety Report 13813800 (Version 3)
Quarter: 2019Q2

REPORT INFORMATION
  Report Type: Spontaneous
  Country: US (occurrence: US)
  Receive Date: 20170731
  Receipt Date: 20190520
  Transmission Date: 20190711
  Serious: No
  Sender: FDA-Public Use
  Company Number: US-PFIZER INC-2017328457

PATIENT
  Age: 46 Year
  Sex: Female

DRUGS (16)
  1. LEVOTHYROXINE. [Concomitant]
     Active Substance: LEVOTHYROXINE
     Indication: THYROID DISORDER
     Dosage: 0.15 UG, 1X/DAY
  2. CYMBALTA [Concomitant]
     Active Substance: DULOXETINE HYDROCHLORIDE
     Dosage: UNK
  3. LYRICA [Suspect]
     Active Substance: PREGABALIN
     Indication: FIBROMYALGIA
     Dosage: 300 MG, 2X/DAY (LYRICA 150 MG TWO PO Q 12 HRS)
     Route: 048
  4. PREVACID [Concomitant]
     Active Substance: LANSOPRAZOLE
     Dosage: UNK
  5. LYRICA [Suspect]
     Active Substance: PREGABALIN
     Indication: NEUROPATHY PERIPHERAL
     Dosage: 150 MG, 4X/DAY (QID/ Q 6HRS)
     Route: 048
     Dates: start: 2014
  6. ESTRADIOL. [Concomitant]
     Active Substance: ESTRADIOL
     Indication: HORMONE THERAPY
     Dosage: 0.2 MG, 1X/DAY
  7. CYTOMEL [Concomitant]
     Active Substance: LIOTHYRONINE SODIUM
     Dosage: UNK
  8. LINZESS [Concomitant]
     Active Substance: LINACLOTIDE
     Dosage: UNK
  9. LYRICA [Suspect]
     Active Substance: PREGABALIN
     Indication: PAIN IN EXTREMITY
  10. FLEXERIL [Concomitant]
     Active Substance: CYCLOBENZAPRINE HYDROCHLORIDE
     Dosage: UNK
  11. LOSARTAN AND HYDROCHLOROTHIAZIDE [Concomitant]
     Active Substance: HYDROCHLOROTHIAZIDE\LOSARTAN POTASSIUM
     Dosage: UNK
  12. WELLBUTRIN [Concomitant]
     Active Substance: BUPROPION HYDROCHLORIDE
     Dosage: UNK
  13. NORCO [Concomitant]
     Active Substance: ACETAMINOPHEN\HYDROCODONE BITARTRATE
     Dosage: UNK
  14. HYDROCODONE [Concomitant]
     Active Substance: HYDROCODONE
     Indication: PAIN
     Dosage: 10-325MG TABLETS AS NEEDED
     Dates: start: 2012
  15. ALBUTEROL. [Concomitant]
     Active Substance: ALBUTEROL
     Dosage: UNK
  16. TOPAMAX [Concomitant]
     Active Substance: TOPIRAMATE
     Dosage: UNK

REACTIONS (3)
  - Arthritis [Unknown]
  - Off label use [Unknown]
  - Product use issue [Unknown]

NARRATIVE: CASE EVENT DATE: 2014
